FAERS Safety Report 14200765 (Version 1)
Quarter: 2017Q4

REPORT INFORMATION
  Report Type: Spontaneous
  Country: US (occurrence: US)
  Receive Date: 20171117
  Receipt Date: 20171117
  Transmission Date: 20180321
  Serious: No
  Sender: FDA-Public Use
  Company Number: US-NOVOPROD-540372

PATIENT
  Age: 54 Year
  Sex: Male
  Weight: 79.37 kg

DRUGS (3)
  1. LEVEMIR [Concomitant]
     Active Substance: INSULIN DETEMIR
     Indication: TYPE 1 DIABETES MELLITUS
     Dosage: 15 U, QD  AT NIGHT
     Route: 058
     Dates: start: 2016
  2. NOVOLOG [Suspect]
     Active Substance: INSULIN ASPART
     Indication: TYPE 1 DIABETES MELLITUS
     Dosage: 3 TO 5 UNITS, TID MEALTIMES
     Route: 058
     Dates: start: 2016
  3. NOVOLOG [Suspect]
     Active Substance: INSULIN ASPART
     Dosage: DOSE INCREASED PER SLIDING SCALE
     Route: 058

REACTIONS (4)
  - Increased insulin requirement [Recovered/Resolved]
  - Blood glucose increased [Recovered/Resolved]
  - Product colour issue [Not Recovered/Not Resolved]
  - Somnolence [Recovered/Resolved]

NARRATIVE: CASE EVENT DATE: 20170401
